FAERS Safety Report 23474035 (Version 1)
Quarter: 2024Q1

REPORT INFORMATION
  Report Type: Report from Study
  Country: JP (occurrence: JP)
  Receive Date: 20240204
  Receipt Date: 20240204
  Transmission Date: 20240409
  Serious: Yes (Hospitalization)
  Sender: FDA-Public Use
  Company Number: JP-JNJFOC-A-CH2017-158984

PATIENT
  Age: 85 Year
  Sex: Female

DRUGS (12)
  1. TRACLEER [Suspect]
     Active Substance: BOSENTAN
     Indication: Scleroderma associated digital ulcer
     Dosage: 62.5 MG, BID
     Route: 048
     Dates: start: 20170418, end: 20170508
  2. TRACLEER [Suspect]
     Active Substance: BOSENTAN
     Indication: Skin ulcer
     Dosage: 62.5 MG, BID
     Route: 048
     Dates: start: 20170825, end: 20170829
  3. HERBESSER [Suspect]
     Active Substance: DILTIAZEM HYDROCHLORIDE
     Indication: Raynaud^s phenomenon
     Dosage: 100 MG, QD
     Route: 048
     Dates: start: 20170406, end: 20170420
  4. BERAPROST SODIUM [Suspect]
     Active Substance: BERAPROST SODIUM
     Indication: Skin ulcer
     Dosage: 120 UG, QD
     Route: 048
     Dates: start: 20170327, end: 20170405
  5. BERAPROST SODIUM [Suspect]
     Active Substance: BERAPROST SODIUM
     Route: 048
     Dates: start: 20170825, end: 20170829
  6. ALPROSTADIL [Concomitant]
     Active Substance: ALPROSTADIL
     Indication: Skin ulcer
     Route: 042
     Dates: start: 20170406, end: 20170419
  7. BERAPROST SODIUM [Concomitant]
     Active Substance: BERAPROST SODIUM
     Indication: Skin ulcer
     Route: 048
     Dates: start: 20170420, end: 20170427
  8. MAGNESIUM OXIDE [Concomitant]
     Active Substance: MAGNESIUM OXIDE
     Indication: Constipation
     Route: 048
  9. URSO [Concomitant]
     Active Substance: URSODIOL
     Indication: Primary biliary cholangitis
     Route: 048
  10. LIPITOR [Concomitant]
     Active Substance: ATORVASTATIN CALCIUM
     Indication: Dyslipidaemia
     Route: 048
  11. RABEPRAZOLE SODIUM [Concomitant]
     Active Substance: RABEPRAZOLE SODIUM
     Indication: Gastrooesophageal reflux disease
     Route: 048
  12. LEVOTHYROXINE [Concomitant]
     Active Substance: LEVOTHYROXINE\LEVOTHYROXINE SODIUM
     Indication: Hypothyroidism
     Route: 048

REACTIONS (3)
  - Atrial fibrillation [Recovered/Resolved]
  - Generalised oedema [Recovered/Resolved]
  - Chest discomfort [Recovered/Resolved]

NARRATIVE: CASE EVENT DATE: 20170425
